FAERS Safety Report 20430106 (Version 1)
Quarter: 2022Q1

REPORT INFORMATION
  Report Type: Report from Study
  Country: US (occurrence: US)
  Receive Date: 20220204
  Receipt Date: 20220204
  Transmission Date: 20220423
  Serious: Yes (Hospitalization)
  Sender: FDA-Public Use
  Company Number: NVSC2020US031285

PATIENT

DRUGS (6)
  1. PEGASPARGASE [Suspect]
     Active Substance: PEGASPARGASE
     Indication: Acute lymphocytic leukaemia
     Dosage: 3075 IU, EVERY 3 WEEKS
     Route: 042
     Dates: start: 20191218, end: 20200111
  2. RUXOLITINIB [Suspect]
     Active Substance: RUXOLITINIB
     Indication: Acute lymphocytic leukaemia
     Dosage: 60 MG ON DAYS 1-10 AND 21-30
     Route: 048
     Dates: start: 20191217, end: 20200119
  3. VINCRISTINE SULFATE [Suspect]
     Active Substance: VINCRISTINE SULFATE
     Indication: Acute lymphocytic leukaemia
     Dosage: 1.85 MG, ON DAYS 1,11,21,31
     Route: 042
     Dates: start: 20191217, end: 20200121
  4. METHOTREXATE [Suspect]
     Active Substance: METHOTREXATE
     Indication: Acute lymphocytic leukaemia
     Dosage: 185 MG ON DAYS 1,11,21 AND 31
     Route: 042
     Dates: start: 20191217, end: 20200121
  5. METHOTREXATE [Suspect]
     Active Substance: METHOTREXATE
     Dosage: 15 MG ON DAYS 1 AND 31
     Route: 037
     Dates: start: 20191217, end: 20200121
  6. TN UNSPECIFIED [Concomitant]
     Indication: Antifungal prophylaxis
     Dosage: UNK
     Route: 065

REACTIONS (4)
  - Neutropenic colitis [Recovering/Resolving]
  - Bacteraemia [Recovering/Resolving]
  - Encephalitis fungal [Not Recovered/Not Resolved]
  - Encephalopathy [Not Recovered/Not Resolved]

NARRATIVE: CASE EVENT DATE: 20200126
